FAERS Safety Report 22747410 (Version 4)
Quarter: 2023Q4

REPORT INFORMATION
  Report Type: Report from Study
  Country: CR (occurrence: CR)
  Receive Date: 20230725
  Receipt Date: 20231019
  Transmission Date: 20240110
  Serious: Yes (Life-Threatening)
  Sender: FDA-Public Use
  Company Number: CR-002147023-NVSC2023CR162865

PATIENT
  Age: 34 Year
  Sex: Female

DRUGS (3)
  1. KISQALI [Suspect]
     Active Substance: RIBOCICLIB
     Indication: Breast cancer
     Dosage: 600 MG, QD (ONCE A DAY)
     Route: 048
     Dates: start: 20220930
  2. KISQALI [Suspect]
     Active Substance: RIBOCICLIB
     Dosage: 400 MG, QD
     Route: 048
     Dates: start: 20220930
  3. VITAMIN C [Concomitant]
     Active Substance: ASCORBIC ACID
     Indication: Product used for unknown indication
     Dosage: UNK (2)
     Route: 042

REACTIONS (13)
  - Feeling abnormal [Unknown]
  - Hypersensitivity [Recovered/Resolved]
  - Gastritis [Unknown]
  - Discomfort [Unknown]
  - Arthropod bite [Unknown]
  - Pruritus [Unknown]
  - Dry skin [Unknown]
  - Vomiting [Not Recovered/Not Resolved]
  - Diarrhoea [Not Recovered/Not Resolved]
  - Abdominal pain upper [Unknown]
  - Stomatitis [Unknown]
  - Decreased appetite [Unknown]
  - Urticaria [Recovered/Resolved]

NARRATIVE: CASE EVENT DATE: 20220930
